FAERS Safety Report 9135000 (Version 5)
Quarter: 2014Q1

REPORT INFORMATION
  Report Type: Report from Study
  Country: US (occurrence: US)
  Receive Date: 20130304
  Receipt Date: 20140313
  Transmission Date: 20141002
  Serious: Yes (Life-Threatening, Hospitalization)
  Sender: FDA-Public Use
  Company Number: US-JNJFOC-20130216638

PATIENT
  Age: 12 Year
  Sex: Male
  Weight: 34.9 kg

DRUGS (5)
  1. REMICADE [Suspect]
     Indication: INFLAMMATORY BOWEL DISEASE
     Route: 042
     Dates: start: 20080117, end: 20081010
  2. CIMZIA [Concomitant]
     Route: 065
  3. METHOTREXATE [Concomitant]
     Route: 065
  4. PROBIOTICS [Concomitant]
     Route: 065
  5. GROWTH HORMONE [Concomitant]
     Route: 065

REACTIONS (2)
  - Intestinal perforation [Recovered/Resolved]
  - Peritonitis [Recovered/Resolved]
